FAERS Safety Report 6702274-0 (Version None)
Quarter: 2010Q2

REPORT INFORMATION
  Report Type: 
  Country: None (occurrence: None)
  Receive Date: 20100429
  Receipt Date: 20100413
  Transmission Date: 20101027
  Serious: Yes (Hospitalization, Other)
  Sender: FDA-Public Use
  Company Number: PHHY2010ZA02579

PATIENT
  Sex: Female
  Weight: 60 kg

DRUGS (3)
  1. RITALIN [Suspect]
     Indication: ATTENTION DEFICIT/HYPERACTIVITY DISORDER
     Dosage: 300 MG PER DAY
     Route: 048
  2. ZOLOFT [Concomitant]
     Indication: DEPRESSION
     Dosage: 200 MG PER DAY
     Dates: start: 20100115
  3. XANOR [Concomitant]
     Dosage: WHEN NACESSARY, UNK

REACTIONS (9)
  - BIPOLAR DISORDER [None]
  - BLOOD THYROID STIMULATING HORMONE DECREASED [None]
  - DRUG ABUSE [None]
  - DRUG DEPENDENCE [None]
  - EUPHORIC MOOD [None]
  - HYPERTHYROIDISM [None]
  - INTENTIONAL DRUG MISUSE [None]
  - INTENTIONAL OVERDOSE [None]
  - THYROXINE FREE INCREASED [None]
